FAERS Safety Report 8564022 (Version 4)
Quarter: 2015Q2

REPORT INFORMATION
  Report Type: Spontaneous
  Country: JP (occurrence: JP)
  Receive Date: 20120516
  Receipt Date: 20150527
  Transmission Date: 20150821
  Serious: Yes (Life-Threatening, Hospitalization, Other)
  Sender: FDA-Public Use
  Company Number: JP-SHIRE-ALL1-2012-02398

PATIENT
  Age: 74 Year
  Sex: Male

DRUGS (5)
  1. KALIMATE [Suspect]
     Active Substance: CALCIUM POLYSTYRENE SULFONATE
     Indication: HYPERKALAEMIA
     Dosage: 10.2 G, UNKNOWN
     Route: 048
     Dates: end: 20120407
  2. ANPLAG [Concomitant]
     Active Substance: SARPOGRELATE
     Indication: ARTERIAL OCCLUSIVE DISEASE
     Dosage: 300 MG, UNKNOWN
     Route: 048
     Dates: start: 20120130
  3. KETOBUN A [Concomitant]
     Active Substance: ALLOPURINOL
     Indication: HYPERURICAEMIA
     Dosage: 100 MG, UNKNOWN
     Route: 048
     Dates: end: 20120407
  4. FOSRENOL [Suspect]
     Active Substance: LANTHANUM CARBONATE
     Indication: HYPERPHOSPHATAEMIA
     Dosage: 750 MG, UNKNOWN (TOTAL DAILY DOSE)
     Route: 048
     Dates: start: 20090701, end: 20120407
  5. REGPARA [Concomitant]
     Active Substance: CINACALCET HYDROCHLORIDE
     Indication: HYPERPARATHYROIDISM SECONDARY
     Dosage: 25 MG, UNKNOWN
     Route: 048
     Dates: start: 20111026, end: 20120407

REACTIONS (1)
  - Large intestine perforation [Recovered/Resolved]

NARRATIVE: CASE EVENT DATE: 20120407
